FAERS Safety Report 4953073-1 (Version None)
Quarter: 2006Q1

REPORT INFORMATION
  Report Type: 
  Country: None (occurrence: None)
  Receive Date: 20060321
  Receipt Date: 20060306
  Transmission Date: 20060701
  Serious: Yes (Hospitalization)
  Sender: FDA-Public Use
  Company Number: AND_0290_2006

PATIENT
  Age: 37 Year
  Sex: Male

DRUGS (3)
  1. METFORMIN [Suspect]
     Dosage: 45 G ONCE PO
     Route: 048
  2. GLYBURIDE [Suspect]
     Dosage: 150 MG ONCE PO
     Route: 048
  3. ATORVASTATIN CALCIUM [Suspect]
     Dosage: 600 MG ONCE PO
     Route: 048

REACTIONS (16)
  - BRADYCARDIA [None]
  - DIALYSIS [None]
  - DISORIENTATION [None]
  - GENERAL PHYSICAL HEALTH DETERIORATION [None]
  - HAEMODIALYSIS [None]
  - HAEMODYNAMIC INSTABILITY [None]
  - HYPERLACTACIDAEMIA [None]
  - HYPOGLYCAEMIA [None]
  - HYPOTENSION [None]
  - HYPOXIA [None]
  - LETHARGY [None]
  - METABOLIC ACIDOSIS [None]
  - MULTIPLE DRUG OVERDOSE INTENTIONAL [None]
  - RENAL FAILURE ACUTE [None]
  - RESPIRATORY FAILURE [None]
  - VENTRICULAR TACHYCARDIA [None]
